FAERS Safety Report 18058574 (Version 42)
Quarter: 2023Q1

REPORT INFORMATION
  Report Type: Spontaneous
  Country: GB (occurrence: GB)
  Receive Date: 20200723
  Receipt Date: 20230303
  Transmission Date: 20230418
  Serious: Yes (Death, Life-Threatening, Hospitalization, Other)
  Sender: FDA-Public Use
  Company Number: None

PATIENT
  Age: 56 Year
  Sex: Male
  Weight: 92 kg

DRUGS (81)
  1. OMEPRAZOLE [Suspect]
     Active Substance: OMEPRAZOLE
     Indication: Radiotherapy
     Dosage: UNK
  2. OMEPRAZOLE [Suspect]
     Active Substance: OMEPRAZOLE
     Indication: Abdominal discomfort
     Route: 048
  3. OMEPRAZOLE [Suspect]
     Active Substance: OMEPRAZOLE
     Route: 048
  4. OMEPRAZOLE [Suspect]
     Active Substance: OMEPRAZOLE
     Route: 003
  5. OMEPRAZOLE [Suspect]
     Active Substance: OMEPRAZOLE
  6. OMEPRAZOLE [Suspect]
     Active Substance: OMEPRAZOLE
  7. OMEPRAZOLE [Suspect]
     Active Substance: OMEPRAZOLE
  8. OMEPRAZOLE [Suspect]
     Active Substance: OMEPRAZOLE
     Dosage: UNKNOWN, WEEKLY, QW (AT 17.5, WEEKLY)
  9. OMEPRAZOLE [Suspect]
     Active Substance: OMEPRAZOLE
  10. CIPROFLOXACIN [Suspect]
     Active Substance: CIPROFLOXACIN
     Indication: Myocardial ischaemia
  11. CIPROFLOXACIN [Suspect]
     Active Substance: CIPROFLOXACIN
     Indication: Depression
  12. CIPROFLOXACIN [Suspect]
     Active Substance: CIPROFLOXACIN
     Indication: Radiotherapy to pharynx
  13. CIPROFLOXACIN [Suspect]
     Active Substance: CIPROFLOXACIN
     Indication: Lung neoplasm malignant
  14. CIPROFLOXACIN [Suspect]
     Active Substance: CIPROFLOXACIN
     Indication: Radiotherapy to pharynx
  15. CIPROFLOXACIN [Suspect]
     Active Substance: CIPROFLOXACIN
     Indication: Abdominal discomfort
  16. CIPROFLOXACIN [Suspect]
     Active Substance: CIPROFLOXACIN
     Indication: Rheumatoid arthritis
  17. CLOZARIL [Suspect]
     Active Substance: CLOZAPINE
     Indication: Small cell carcinoma
  18. CLOZARIL [Suspect]
     Active Substance: CLOZAPINE
     Indication: Schizophrenia
     Dates: start: 20200525
  19. CLOZARIL [Suspect]
     Active Substance: CLOZAPINE
     Route: 048
  20. CLOZARIL [Suspect]
     Active Substance: CLOZAPINE
     Dates: start: 20090403
  21. CLOZARIL [Suspect]
     Active Substance: CLOZAPINE
     Route: 048
     Dates: start: 20200403
  22. CLOZARIL [Suspect]
     Active Substance: CLOZAPINE
     Route: 048
     Dates: start: 20200521, end: 202005
  23. TAMSULOSIN [Suspect]
     Active Substance: TAMSULOSIN
     Indication: Product used for unknown indication
     Dosage: 8 MILLIGRAM
  24. TAMSULOSIN [Suspect]
     Active Substance: TAMSULOSIN
  25. TAMSULOSIN [Suspect]
     Active Substance: TAMSULOSIN
  26. TAMSULOSIN [Suspect]
     Active Substance: TAMSULOSIN
     Dosage: 20 MG, BID (20 MG, Q12H (20 MG, BID)
  27. TAMSULOSIN [Suspect]
     Active Substance: TAMSULOSIN
  28. DEXAMETHASONE [Suspect]
     Active Substance: DEXAMETHASONE
     Indication: Stent placement
     Dosage: 20 MILLIGRAM
  29. DEXAMETHASONE [Suspect]
     Active Substance: DEXAMETHASONE
     Indication: Radiotherapy to pharynx
     Dates: start: 20200515, end: 20200528
  30. DEXAMETHASONE [Suspect]
     Active Substance: DEXAMETHASONE
     Indication: Radiotherapy
     Route: 048
     Dates: start: 20200521, end: 20200528
  31. DEXAMETHASONE [Suspect]
     Active Substance: DEXAMETHASONE
     Dates: start: 202005
  32. DEXAMETHASONE [Suspect]
     Active Substance: DEXAMETHASONE
     Dosage: 750 MG
     Dates: start: 20200528
  33. SIMVASTATIN [Suspect]
     Active Substance: SIMVASTATIN
     Indication: Schizophrenia
     Route: 048
  34. SIMVASTATIN [Suspect]
     Active Substance: SIMVASTATIN
     Indication: Product used for unknown indication
     Dosage: 150 MG, QD
  35. SIMVASTATIN [Suspect]
     Active Substance: SIMVASTATIN
     Dosage: 750 MG, UNK;
  36. SIMVASTATIN [Suspect]
     Active Substance: SIMVASTATIN
     Route: 048
  37. CLOZAPINE [Suspect]
     Active Substance: CLOZAPINE
     Indication: Rash
     Dosage: 5 MILLIGRAM
  38. CLOZAPINE [Suspect]
     Active Substance: CLOZAPINE
     Indication: Schizophrenia
     Dates: start: 202005
  39. CLOZAPINE [Suspect]
     Active Substance: CLOZAPINE
     Dates: start: 20200521, end: 202005
  40. CLOZAPINE [Suspect]
     Active Substance: CLOZAPINE
     Route: 048
     Dates: start: 20200403
  41. CLOZAPINE [Suspect]
     Active Substance: CLOZAPINE
     Route: 048
     Dates: start: 20090403
  42. DIPHENYLGUANIDINE [Suspect]
     Active Substance: DIPHENYLGUANIDINE
     Indication: Product used for unknown indication
     Dosage: UNK
  43. CARBAMAZEPINE [Suspect]
     Active Substance: CARBAMAZEPINE
     Indication: Schizophrenia
     Dosage: UNK
     Route: 048
  44. CARBOCYSTEINE [Suspect]
     Active Substance: CARBOCYSTEINE
     Indication: Radiotherapy
     Dosage: UNK
  45. CARBOCYSTEINE [Suspect]
     Active Substance: CARBOCYSTEINE
     Indication: Product used for unknown indication
  46. CARBOCYSTEINE [Suspect]
     Active Substance: CARBOCYSTEINE
     Indication: Rheumatoid arthritis
  47. ENBREL [Suspect]
     Active Substance: ETANERCEPT
     Indication: Pneumonia
     Dosage: 20 MILLIGRAM, BID
  48. ENBREL [Suspect]
     Active Substance: ETANERCEPT
     Indication: Rheumatoid arthritis
     Dates: start: 20100917
  49. IRBESARTAN [Suspect]
     Active Substance: IRBESARTAN
     Indication: Product used for unknown indication
     Dosage: 20 MILLIGRAM, BID
  50. IRBESARTAN [Suspect]
     Active Substance: IRBESARTAN
     Dates: start: 20100917
  51. IRBESARTAN [Suspect]
     Active Substance: IRBESARTAN
     Dates: start: 20100912
  52. METHOTREXATE SODIUM [Suspect]
     Active Substance: METHOTREXATE SODIUM
     Indication: Product used for unknown indication
     Route: 048
     Dates: start: 20100917
  53. METHOTREXATE SODIUM [Suspect]
     Active Substance: METHOTREXATE SODIUM
     Indication: Rheumatoid arthritis
     Route: 048
     Dates: start: 20100917
  54. PHYLLOCONTIN [Suspect]
     Active Substance: AMINOPHYLLINE
     Indication: Product used for unknown indication
     Dosage: 20 MILLIGRAM, BID
  55. PHYLLOCONTIN [Suspect]
     Active Substance: AMINOPHYLLINE
  56. VENLAFAXINE HYDROCHLORIDE [Suspect]
     Active Substance: VENLAFAXINE HYDROCHLORIDE
     Indication: Schizophrenia
  57. VENLAFAXINE HYDROCHLORIDE [Suspect]
     Active Substance: VENLAFAXINE HYDROCHLORIDE
     Indication: Rheumatoid arthritis
  58. VENLAFAXINE HYDROCHLORIDE [Suspect]
     Active Substance: VENLAFAXINE HYDROCHLORIDE
     Indication: Depression
  59. DITIOCARB ZINC [Suspect]
     Active Substance: DITIOCARB ZINC
     Indication: Schizophrenia
     Dosage: UNK
  60. DITIOCARB [Suspect]
     Active Substance: DITIOCARB
     Indication: Radiotherapy
     Dosage: UNK
  61. DITIOCARB [Suspect]
     Active Substance: DITIOCARB
     Indication: Abdominal discomfort
  62. CETIRIZINE [Concomitant]
     Active Substance: CETIRIZINE HYDROCHLORIDE
     Indication: Radiotherapy to pharynx
     Dosage: UNK
  63. CETIRIZINE [Concomitant]
     Active Substance: CETIRIZINE HYDROCHLORIDE
     Indication: Abdominal discomfort
  64. FOLIC ACID [Concomitant]
     Active Substance: FOLIC ACID
     Indication: Lower respiratory tract infection
     Dosage: UNK
  65. FOLIC ACID [Concomitant]
     Active Substance: FOLIC ACID
     Indication: Abdominal discomfort
     Route: 048
  66. BENDROFLUMETHIAZIDE [Concomitant]
     Active Substance: BENDROFLUMETHIAZIDE
     Indication: Empty sella syndrome
     Dosage: 20 MILLIGRAM
  67. BENDROFLUMETHIAZIDE [Concomitant]
     Active Substance: BENDROFLUMETHIAZIDE
     Indication: Pituitary tumour
  68. BENDROFLUMETHIAZIDE [Concomitant]
     Active Substance: BENDROFLUMETHIAZIDE
     Indication: Depression
  69. CABERGOLINE [Concomitant]
     Active Substance: CABERGOLINE
     Indication: Gastric disorder
  70. CABERGOLINE [Concomitant]
     Active Substance: CABERGOLINE
     Indication: Product used for unknown indication
  71. CABERGOLINE [Concomitant]
     Active Substance: CABERGOLINE
     Indication: Pituitary tumour
  72. CABERGOLINE [Concomitant]
     Active Substance: CABERGOLINE
     Indication: Empty sella syndrome
  73. UNSPECIFIED INGREDIENT [Concomitant]
     Active Substance: UNSPECIFIED INGREDIENT
     Indication: Tooth infection
  74. EZETIMIBE [Concomitant]
     Active Substance: EZETIMIBE
     Indication: Depression
     Dosage: 20 MG (20 MG, Q12H)
  75. LEVOTHYROXINE [Concomitant]
     Active Substance: LEVOTHYROXINE
     Indication: Pituitary tumour
  76. LEVOTHYROXINE [Concomitant]
     Active Substance: LEVOTHYROXINE
     Indication: Abdominal discomfort
  77. ORUVAIL [Concomitant]
     Active Substance: KETOPROFEN
     Indication: Abdominal discomfort
  78. ORUVAIL [Concomitant]
     Active Substance: KETOPROFEN
     Indication: Empty sella syndrome
  79. ORUVAIL [Concomitant]
     Active Substance: KETOPROFEN
  80. SULFAGUANIDINE [Concomitant]
     Active Substance: SULFAGUANIDINE
     Indication: Product used for unknown indication
     Dosage: 750 MILLIGRAM
     Route: 048
  81. CHARCOAL ACTIVATED [Concomitant]
     Active Substance: ACTIVATED CHARCOAL
     Indication: Product used for unknown indication

REACTIONS (18)
  - Inflammation [Fatal]
  - Lung neoplasm malignant [Fatal]
  - Schizophrenia [Fatal]
  - Radiation inflammation [Fatal]
  - COVID-19 [Fatal]
  - Condition aggravated [Fatal]
  - Lower respiratory tract infection [Not Recovered/Not Resolved]
  - Pulmonary pain [Unknown]
  - Abdominal discomfort [Unknown]
  - Knee arthroplasty [Unknown]
  - Arthropathy [Unknown]
  - Arthropathy [Unknown]
  - Rash [Unknown]
  - Drug abuse [Unknown]
  - Intentional product misuse [Unknown]
  - Product dose omission issue [Unknown]
  - Off label use [Unknown]
  - Overdose [Unknown]

NARRATIVE: CASE EVENT DATE: 20200401
